FAERS Safety Report 8926042 (Version 3)
Quarter: 2013Q1

REPORT INFORMATION
  Report Type: Spontaneous
  Country: US (occurrence: US)
  Receive Date: 20121126
  Receipt Date: 20130111
  Transmission Date: 20140127
  Serious: No
  Sender: FDA-Public Use
  Company Number: US-009507513-1211USA008711

PATIENT
  Age: 43 None
  Sex: Male

DRUGS (3)
  1. PEGINTRON [Suspect]
     Indication: HEPATITIS C
     Dosage: UNK
     Route: 058
     Dates: start: 20121116
  2. RIBAVIRIN [Suspect]
     Indication: HEPATITIS C
     Dosage: UNK
     Route: 048
     Dates: start: 20121116
  3. VICTRELIS [Suspect]
     Indication: HEPATITIS C
     Dosage: UNK
     Route: 048
     Dates: start: 20121217

REACTIONS (10)
  - Injection site erythema [Unknown]
  - Chills [Unknown]
  - Feeling hot [Unknown]
  - Hyperhidrosis [Unknown]
  - Back pain [Unknown]
  - Dysgeusia [Unknown]
  - Headache [Unknown]
  - Dizziness [Unknown]
  - Pruritus [Unknown]
  - Tremor [Unknown]
